FAERS Safety Report 5562755-2 (Version None)
Quarter: 2007Q4

REPORT INFORMATION
  Report Type: 
  Country: None (occurrence: None)
  Receive Date: 20071211
  Receipt Date: 20071211
  Transmission Date: 20080405
  Serious: Yes (Other)
  Sender: FDA-Public Use
  Company Number: None

PATIENT
  Sex: Male
  Weight: 91.6266 kg

DRUGS (1)
  1. LISINOPRIL [Suspect]
     Indication: HYPERTENSION
     Dosage: 10 MG  1/DAY  PO
     Route: 048
     Dates: start: 20071119, end: 20071210

REACTIONS (2)
  - BLOOD PRESSURE INCREASED [None]
  - PHARMACEUTICAL PRODUCT COMPLAINT [None]
